FAERS Safety Report 24535835 (Version 1)
Quarter: 2024Q4

REPORT INFORMATION
  Report Type: Spontaneous
  Country: FR (occurrence: FR)
  Receive Date: 20241022
  Receipt Date: 20241022
  Transmission Date: 20250114
  Serious: Yes (Hospitalization, Other)
  Sender: GLAXOSMITHKLINE
  Company Number: None

PATIENT

DRUGS (3)
  1. LAMOTRIGINE [Suspect]
     Active Substance: LAMOTRIGINE
     Indication: Product administration error
     Dosage: 150 MG (1 SINGLE)
     Route: 048
     Dates: start: 20240914
  2. CLOZAPINE [Suspect]
     Active Substance: CLOZAPINE
     Indication: Product administration error
     Dosage: 100 MG (2 TOTAL)
     Route: 048
     Dates: start: 20240914
  3. CLOBAZAM [Suspect]
     Active Substance: CLOBAZAM
     Indication: Product administration error
     Dosage: 1 DF (1 SINGLE)
     Route: 048
     Dates: start: 20240914

REACTIONS (3)
  - Torsade de pointes [Recovering/Resolving]
  - Electrocardiogram QT prolonged [Recovering/Resolving]
  - Hypotension [Recovering/Resolving]

NARRATIVE: CASE EVENT DATE: 20240916
